FAERS Safety Report 25227698 (Version 4)
Quarter: 2025Q2

REPORT INFORMATION
  Report Type: Report from Study
  Country: US (occurrence: US)
  Receive Date: 20250423
  Receipt Date: 20250530
  Transmission Date: 20250717
  Serious: Yes (Hospitalization)
  Sender: JAZZ
  Company Number: US-JAZZ PHARMACEUTICALS-2025-US-010166

PATIENT
  Sex: Male

DRUGS (1)
  1. EPIDIOLEX [Suspect]
     Active Substance: CANNABIDIOL
     Indication: Early infantile epileptic encephalopathy with burst-suppression
     Dosage: 0.8 MILLILITER, BID
     Route: 048
     Dates: start: 202504

REACTIONS (2)
  - Seizure [Unknown]
  - Off label use [Unknown]
